FAERS Safety Report 5936345-3 (Version None)
Quarter: 2008Q4

REPORT INFORMATION
  Report Type: 
  Country: None (occurrence: None)
  Receive Date: 20081030
  Receipt Date: 20081020
  Transmission Date: 20090506
  Serious: Yes (Disabling, Other)
  Sender: FDA-Public Use
  Company Number: GB-ELI_LILLY_AND_COMPANY-GB200809003731

PATIENT
  Sex: Male

DRUGS (4)
  1. ZYPREXA [Suspect]
     Dosage: 2.5 MG, UNK
     Route: 048
     Dates: start: 20040826
  2. AMITRIPTYLINE HCL [Concomitant]
     Dosage: 150 MG, UNK
     Route: 048
  3. CARBAMAZEPINE [Concomitant]
     Dosage: 200 MG, UNK
     Route: 048
  4. DIAZEPAM [Concomitant]
     Dosage: 5 MG, UNK
     Route: 048

REACTIONS (2)
  - CHOREA [None]
  - TARDIVE DYSKINESIA [None]
